FAERS Safety Report 5754126-0 (Version None)
Quarter: 2008Q2

REPORT INFORMATION
  Report Type: 
  Country: None (occurrence: None)
  Receive Date: 20080528
  Receipt Date: 20080528
  Transmission Date: 20081010
  Serious: Yes (Other)
  Sender: FDA-Public Use
  Company Number: None

PATIENT
  Sex: Female

DRUGS (1)
  1. TUBERSOL [Suspect]
     Indication: TUBERCULIN TEST
     Dosage: 0.1ML X1 INTRADERMAL
     Route: 023
     Dates: start: 20080519

REACTIONS (4)
  - ERYTHEMA [None]
  - PRURITUS [None]
  - RASH PAPULAR [None]
  - URTICARIA [None]
